FAERS Safety Report 8550981-X (Version None)
Quarter: 2012Q3

REPORT INFORMATION
  Report Type: 
  Country: None (occurrence: None)
  Receive Date: 20120723
  Receipt Date: 20120723
  Transmission Date: 20120928
  Serious: Yes (Other)
  Sender: FDA-Public Use
  Company Number: None

PATIENT
  Sex: Female

DRUGS (2)
  1. LETROZOLE [Suspect]
     Indication: BREAST CANCER
     Dosage: 2.5 MG ONCE DAILY PO
     Route: 048
     Dates: start: 20120223, end: 20120720
  2. VITAMIN D [Concomitant]

REACTIONS (2)
  - WEIGHT INCREASED [None]
  - FLUID RETENTION [None]
